FAERS Safety Report 4445709-9 (Version None)
Quarter: 2004Q3

REPORT INFORMATION
  Report Type: 
  Country: None (occurrence: None)
  Receive Date: 20040902
  Receipt Date: 20040825
  Transmission Date: 20050211
  Serious: Yes (Other)
  Sender: FDA-Public Use
  Company Number: HQWYE611926AUG04

PATIENT

DRUGS (1)
  1. EFFEXOR [Suspect]
     Route: 048

REACTIONS (2)
  - ANGER [None]
  - DRUG WITHDRAWAL SYNDROME [None]
